FAERS Safety Report 8823650 (Version 2)
Quarter: 2012Q4

REPORT INFORMATION
  Report Type: Report from Study
  Country: BE (occurrence: BE)
  Receive Date: 20121003
  Receipt Date: 20121015
  Transmission Date: 20130627
  Serious: Yes (Hospitalization)
  Sender: FDA-Public Use
  Company Number: BE-TEVA-362263USA

PATIENT
  Age: 84 Year
  Sex: Female
  Weight: 44.8 kg

DRUGS (2)
  1. TREANDA [Suspect]
     Dosage: 124 mg, Unknown/D
     Dates: start: 20120227
  2. RITUXIMAB [Suspect]
     Dosage: 517 mg, Unknown/D
     Dates: start: 20120227

REACTIONS (1)
  - Cholelithiasis [Recovered/Resolved]
